FAERS Safety Report 13188716 (Version 1)
Quarter: 2017Q1

REPORT INFORMATION
  Report Type: Spontaneous
  Country: US (occurrence: US)
  Receive Date: 20170205
  Receipt Date: 20170205
  Transmission Date: 20170428
  Serious: Yes (Death)
  Sender: FDA-Public Use
  Company Number: None

PATIENT
  Age: 24 Year
  Sex: Male
  Weight: 63 kg

DRUGS (3)
  1. B 12 VITAMINS [Concomitant]
  2. ZANTAC [Concomitant]
     Active Substance: RANITIDINE HYDROCHLORIDE
  3. TESTOSTERONE INJECTIONS [Suspect]
     Active Substance: TESTOSTERONE
     Indication: BLOOD TESTOSTERONE DECREASED
     Dates: start: 20160315, end: 20160904

REACTIONS (1)
  - Thrombosis [None]

NARRATIVE: CASE EVENT DATE: 20161028
